FAERS Safety Report 14940437 (Version 1)
Quarter: 2018Q2

REPORT INFORMATION
  Report Type: Spontaneous
  Country: DE (occurrence: DE)
  Receive Date: 20180525
  Receipt Date: 20180525
  Transmission Date: 20180711
  Serious: Yes (Other)
  Sender: FDA-Public Use
  Company Number: DE-GLAXOSMITHKLINE-DE2018GSK092899

PATIENT
  Age: 1 Day
  Sex: Male
  Weight: 2.77 kg

DRUGS (3)
  1. OMACOR [Suspect]
     Active Substance: OMEGA-3-ACID ETHYL ESTERS
     Indication: FAMILIAL HYPERTRIGLYCERIDAEMIA
     Dosage: 3000 MG, QD
     Route: 064
  2. GEVILON [Suspect]
     Active Substance: GEMFIBROZIL
     Indication: FAMILIAL HYPERTRIGLYCERIDAEMIA
     Dosage: 600 MG, QD, UNTIL WEEK 39+4 600MG/D EVERY SESCOND DAY
     Route: 064
     Dates: start: 20171116, end: 20171222
  3. FOLSAURE [Concomitant]
     Active Substance: FOLIC ACID
     Indication: PROPHYLAXIS OF NEURAL TUBE DEFECT
     Dosage: UNK

REACTIONS (1)
  - Small for dates baby [Unknown]

NARRATIVE: CASE EVENT DATE: 20171222
